FAERS Safety Report 6413118-9 (Version None)
Quarter: 2009Q4

REPORT INFORMATION
  Report Type: 
  Country: None (occurrence: None)
  Receive Date: 20091022
  Receipt Date: 20091022
  Transmission Date: 20100525
  Serious: Yes (Hospitalization, Other)
  Sender: FDA-Public Use
  Company Number: None

PATIENT
  Sex: Female
  Weight: 54.4316 kg

DRUGS (1)
  1. LEVAQUIN [Suspect]
     Indication: PNEUMONIA BACTERIAL
     Dosage: IV 3X / DAY IV + PO; PO 500MG 1X / DAY
     Route: 048
     Dates: start: 20080311, end: 20080321

REACTIONS (15)
  - AGITATION [None]
  - DIZZINESS [None]
  - EXCESSIVE EYE BLINKING [None]
  - HALLUCINATIONS, MIXED [None]
  - HEADACHE [None]
  - HEART RATE INCREASED [None]
  - HYPERHIDROSIS [None]
  - INSOMNIA [None]
  - NERVOUSNESS [None]
  - ORAL CANDIDIASIS [None]
  - PARANOIA [None]
  - PRESSURE OF SPEECH [None]
  - TREMOR [None]
  - UNEVALUABLE EVENT [None]
  - VISION BLURRED [None]
